FAERS Safety Report 9531130 (Version 4)
Quarter: 2014Q2

REPORT INFORMATION
  Report Type: Spontaneous
  Country: US (occurrence: US)
  Receive Date: 20130918
  Receipt Date: 20140630
  Transmission Date: 20141212
  Serious: Yes (Hospitalization, Other)
  Sender: FDA-Public Use
  Company Number: PHEH2013US019479

PATIENT
  Age: 59 Year
  Sex: Male
  Weight: 96 kg

DRUGS (5)
  1. EXFORGE HCT [Suspect]
     Indication: HYPERTENSION
     Dosage: 1 DF, VALS 320 MG, AMLO 10 MG, HCTZ 25 MG QD
     Route: 048
     Dates: start: 2011, end: 2013
  2. EXFORGE [Suspect]
     Dosage: UNK UKN, UNK (VALS 320 MG, AMLO 10 MG)
  3. COMBIGAN [Concomitant]
     Dosage: UNK UKN, UNK
  4. AZOPT [Concomitant]
     Dosage: UNK UKN, UNK
  5. TRAVATAN [Concomitant]
     Dosage: UNK UKN, UNK

REACTIONS (17)
  - Neoplasm [Recovered/Resolved]
  - Blindness [Unknown]
  - Type 2 diabetes mellitus [Not Recovered/Not Resolved]
  - Renal failure [Not Recovered/Not Resolved]
  - Blood urea increased [Unknown]
  - Blood creatinine increased [Unknown]
  - Globulins increased [Unknown]
  - Glycosylated haemoglobin increased [Unknown]
  - Urine albumin/creatinine ratio increased [Unknown]
  - Prostatic specific antigen increased [Unknown]
  - Gait disturbance [Unknown]
  - Peripheral swelling [Unknown]
  - Blood glucose increased [Unknown]
  - Haemoglobin decreased [Unknown]
  - Oedema [Unknown]
  - Hypertension [Recovering/Resolving]
  - Dyslipidaemia [Recovering/Resolving]
